FAERS Safety Report 22520710 (Version 3)
Quarter: 2024Q2

REPORT INFORMATION
  Report Type: Spontaneous
  Country: US (occurrence: US)
  Receive Date: 20230605
  Receipt Date: 20240405
  Transmission Date: 20240715
  Serious: Yes (Death, Other)
  Sender: FDA-Public Use
  Company Number: US-PFIZER INC-PV202300098175

PATIENT
  Age: 83 Year
  Sex: Male
  Weight: 68.027 kg

DRUGS (1)
  1. VYNDAMAX [Suspect]
     Active Substance: TAFAMIDIS
     Indication: Amyloidosis
     Dosage: 61 MG
     Dates: start: 202305

REACTIONS (3)
  - Creutzfeldt-Jakob disease [Fatal]
  - Cardiac failure [Unknown]
  - Confusional state [Unknown]
